FAERS Safety Report 4340059-3 (Version None)
Quarter: 2004Q2

REPORT INFORMATION
  Report Type: 
  Country: None (occurrence: None)
  Receive Date: 20040412
  Receipt Date: 20040330
  Transmission Date: 20050107
  Serious: Yes (Hospitalization, Other)
  Sender: FDA-Public Use
  Company Number: 2004196889CA

PATIENT
  Age: 55 Year
  Sex: Female
  Weight: 92.1 kg

DRUGS (1)
  1. BEXTRA [Suspect]
     Indication: ARTHRITIS
     Dosage: 20 MG, QD, ORAL
     Route: 048
     Dates: start: 20031001

REACTIONS (5)
  - BODY TEMPERATURE INCREASED [None]
  - ERYTHEMA MULTIFORME [None]
  - NAUSEA [None]
  - URTICARIA GENERALISED [None]
  - VOMITING [None]
